FAERS Safety Report 15312802 (Version 1)
Quarter: 2018Q3

REPORT INFORMATION
  Report Type: Spontaneous
  Country: US (occurrence: US)
  Receive Date: 20180823
  Receipt Date: 20180823
  Transmission Date: 20181010
  Serious: No
  Sender: FDA-Public Use
  Company Number: US-SA-2018SA169637

PATIENT
  Age: 68 Year
  Sex: Female
  Weight: 60 kg

DRUGS (14)
  1. ESTRADIOL. [Concomitant]
     Active Substance: ESTRADIOL
     Dosage: 2 TIMES PER WEEK
     Dates: start: 20141013
  2. CALCIUM + MAGNESIUM + ZINK [Concomitant]
     Dosage: 2 DAILY
     Dates: start: 20161018
  3. WELLBUTRIN [Concomitant]
     Active Substance: BUPROPION HYDROCHLORIDE
     Dosage: UNK UNK, QD
     Dates: start: 20070602
  4. LORATADINE. [Concomitant]
     Active Substance: LORATADINE
     Dosage: UNK UNK, QD
  5. ASPIRIN [ACETYLSALICYLIC ACID] [Concomitant]
     Active Substance: ASPIRIN
     Dosage: UNK UNK, QD
  6. LOSARTIN [Concomitant]
     Active Substance: LOSARTAN
     Dosage: UNK UNK, QD
     Dates: start: 20170105
  7. DULCOLAX NOS [Suspect]
     Active Substance: BISACODYL OR DOCUSATE SODIUM
     Indication: CONSTIPATION
     Dosage: 1 DF (1 TABLET),
     Route: 048
     Dates: start: 201806, end: 201806
  8. OMEPRAZOLE. [Concomitant]
     Active Substance: OMEPRAZOLE
     Dosage: UNK UNK, QD
     Dates: start: 20100620
  9. OSTEO BI?FLEX [CHONDROITIN SULFATE;GLUCOSAMINE HYDROCHLORIDE] [Concomitant]
     Dosage: UNK UNK, QD
     Dates: start: 20120214
  10. ESKIMO?3 [Concomitant]
     Dosage: 3 TABLETS, 1500 MG
     Dates: start: 20060615
  11. ALOE VERA JUICE [Concomitant]
     Dosage: UNK UNK, QD (2 OZ)
     Dates: start: 20161003
  12. ATORVASTATIN [Concomitant]
     Active Substance: ATORVASTATIN
     Dosage: UNK UNK, QD
     Dates: start: 20161213
  13. CHROMIUM PICOLINATE [Concomitant]
     Active Substance: CHROMIUM PICOLINATE
     Dosage: UNK UNK, QD
     Dates: start: 20090801
  14. LUTEIN?ZEAXANTHIN [Concomitant]
     Dosage: LUTEIN 10 MG/ZEAXANTHIN 4 MG,  QD
     Dates: start: 20170801

REACTIONS (1)
  - Muscle spasms [Recovered/Resolved]

NARRATIVE: CASE EVENT DATE: 20180620
